FAERS Safety Report 5322801-8 (Version None)
Quarter: 2007Q2

REPORT INFORMATION
  Report Type: 
  Country: None (occurrence: None)
  Receive Date: 20070511
  Receipt Date: 20070502
  Transmission Date: 20071010
  Serious: Yes (Other)
  Sender: FDA-Public Use
  Company Number: DE-PFIZER INC-2007031621

PATIENT
  Sex: Male

DRUGS (3)
  1. CABASERIL [Suspect]
     Indication: PARKINSON'S DISEASE
     Dosage: DAILY DOSE:6MG-FREQ:DAILY
     Route: 048
     Dates: start: 20021213, end: 20070412
  2. STALEVO 100 [Concomitant]
     Route: 048
  3. PK-MERZ [Concomitant]
     Route: 048
     Dates: start: 20050405

REACTIONS (1)
  - MITRAL VALVE SCLEROSIS [None]
